FAERS Safety Report 10090188 (Version 1)
Quarter: 2014Q2

REPORT INFORMATION
  Report Type: Spontaneous
  Country: US (occurrence: US)
  Receive Date: 20140421
  Receipt Date: 20140421
  Transmission Date: 20141212
  Serious: Yes (Other)
  Sender: FDA-Public Use
  Company Number: US-GLAXOSMITHKLINE-A1069085A

PATIENT
  Age: 60 Year
  Sex: Female

DRUGS (8)
  1. VOTRIENT [Suspect]
     Indication: RENAL CELL CARCINOMA
     Dosage: 800MG PER DAY
     Route: 048
     Dates: start: 201401
  2. NEXAVAR [Concomitant]
  3. STEROIDS [Concomitant]
  4. CYMBALTA [Concomitant]
  5. SEROQUEL [Concomitant]
  6. GABAPENTIN [Concomitant]
  7. DILAUDID [Concomitant]
  8. CPAP [Concomitant]
     Indication: SLEEP APNOEA SYNDROME

REACTIONS (3)
  - Skin exfoliation [Not Recovered/Not Resolved]
  - Haemorrhage subcutaneous [Not Recovered/Not Resolved]
  - Contusion [Not Recovered/Not Resolved]
